FAERS Safety Report 8381254-6 (Version None)
Quarter: 2012Q2

REPORT INFORMATION
  Report Type: 
  Country: None (occurrence: None)
  Receive Date: 20120522
  Receipt Date: 20110331
  Transmission Date: 20120825
  Serious: Yes (Other)
  Sender: FDA-Public Use
  Company Number: ADE12-018

PATIENT

DRUGS (1)
  1. HEPARIN SODIUM INJECTION [Suspect]
     Dosage: INTRAVENOUS
     Route: 042

REACTIONS (2)
  - THROMBOSIS [None]
  - PROCEDURAL COMPLICATION [None]
